FAERS Safety Report 8017615-4 (Version None)
Quarter: 2012Q1

REPORT INFORMATION
  Report Type: 
  Country: None (occurrence: None)
  Receive Date: 20120103
  Receipt Date: 20111221
  Transmission Date: 20120608
  Serious: No
  Sender: FDA-Public Use
  Company Number: US-BAYER-201031584NA

PATIENT
  Age: 36 Year
  Sex: Female
  Weight: 106 kg

DRUGS (1)
  1. MIRENA [Suspect]
     Indication: CONTRACEPTION
     Dosage: FREQUENCY: CONTINUOUS
     Route: 015
     Dates: start: 20100908

REACTIONS (1)
  - PREGNANCY WITH CONTRACEPTIVE DEVICE [None]
